FAERS Safety Report 7631774-4 (Version None)
Quarter: 2011Q3

REPORT INFORMATION
  Report Type: 
  Country: None (occurrence: None)
  Receive Date: 20110725
  Receipt Date: 20110311
  Transmission Date: 20111222
  Serious: No
  Sender: FDA-Public Use
  Company Number: US-BRISTOL-MYERS SQUIBB COMPANY-15603269

PATIENT
  Age: 26 Year
  Sex: Female

DRUGS (2)
  1. WARFARIN SODIUM [Suspect]
  2. FRAGMIN [Concomitant]

REACTIONS (2)
  - EPISTAXIS [None]
  - INTERNATIONAL NORMALISED RATIO ABNORMAL [None]
